FAERS Safety Report 9008273 (Version 1)
Quarter: 2012Q4

REPORT INFORMATION
  Report Type: Spontaneous
  Country: GB (occurrence: None)
  Receive Date: 20121227
  Receipt Date: 20121227
  Transmission Date: 20130627
  Serious: Yes (Other)
  Sender: FDA-Public Use
  Company Number: TUK2012A00322

PATIENT
  Sex: Female

DRUGS (1)
  1. PIOGLITAZONE HYDROCHLORIDE [Suspect]
     Indication: DIABETES

REACTIONS (3)
  - Retinal disorder [None]
  - Cystoid macular oedema [None]
  - No therapeutic response [None]
